FAERS Safety Report 5452129-7 (Version None)
Quarter: 2007Q3

REPORT INFORMATION
  Report Type: 
  Country: None (occurrence: None)
  Receive Date: 20070912
  Receipt Date: 20070912
  Transmission Date: 20080115
  Serious: Yes (Hospitalization)
  Sender: FDA-Public Use
  Company Number: None

PATIENT
  Sex: Female
  Weight: 43.54 kg

DRUGS (2)
  1. CISPLATIN [Suspect]
     Dosage: 43 MG
  2. ERBITUX [Suspect]
     Dosage: 568 MG

REACTIONS (6)
  - ABDOMINAL PAIN [None]
  - CULTURE URINE POSITIVE [None]
  - ESCHERICHIA INFECTION [None]
  - NAUSEA [None]
  - RENAL FAILURE ACUTE [None]
  - VOMITING [None]
